FAERS Safety Report 7281235-X (Version None)
Quarter: 2011Q1

REPORT INFORMATION
  Report Type: 
  Country: None (occurrence: None)
  Receive Date: 20110208
  Receipt Date: 20110131
  Transmission Date: 20110831
  Serious: Yes (Other)
  Sender: FDA-Public Use
  Company Number: CHPA2011US02185

PATIENT
  Age: 68 Year
  Sex: Female
  Weight: 81.633 kg

DRUGS (3)
  1. COUMADIN [Concomitant]
     Dosage: UNK
     Route: 048
     Dates: start: 20100901
  2. PREVACID 24 HR [Suspect]
     Indication: GASTROOESOPHAGEAL REFLUX DISEASE
  3. PREVACID 24 HR [Suspect]
     Indication: HIATUS HERNIA
     Dosage: 30 MG, QD
     Route: 048
     Dates: start: 20090101

REACTIONS (5)
  - INTENTIONAL DRUG MISUSE [None]
  - OVERDOSE [None]
  - THROMBECTOMY [None]
  - THROMBOSIS [None]
  - OFF LABEL USE [None]
